FAERS Safety Report 25005914 (Version 1)
Quarter: 2025Q1

REPORT INFORMATION
  Report Type: Report from Study
  Country: DE (occurrence: DE)
  Receive Date: 20250224
  Receipt Date: 20250224
  Transmission Date: 20250409
  Serious: Yes (Hospitalization, Other)
  Sender: MYLAN
  Company Number: DE-002147023-PHHY2010DE74690

PATIENT
  Age: 58 Year
  Sex: Male

DRUGS (26)
  1. CLOZAPINE [Interacting]
     Active Substance: CLOZAPINE
     Indication: Mania
     Dosage: QD (UPTO 700 MG/DAILY)
     Dates: start: 1995, end: 20090828
  2. CLOZAPINE [Interacting]
     Active Substance: CLOZAPINE
     Indication: Hallucination
     Dates: start: 20090828, end: 20090830
  3. CLOZAPINE [Interacting]
     Active Substance: CLOZAPINE
     Indication: Ill-defined disorder
     Dosage: QD (50-600 MG/ DAILY)
     Dates: start: 20090901, end: 20091004
  4. CLOZAPINE [Interacting]
     Active Substance: CLOZAPINE
     Dosage: 700 MILLIGRAM, QD (700 MG/DAILY)
     Dates: start: 20091005, end: 20091008
  5. CLOZAPINE [Interacting]
     Active Substance: CLOZAPINE
     Dosage: 750 MILLIGRAM, QD (750 MG/DAILY)
     Dates: start: 20091009, end: 20091011
  6. CLOZAPINE [Interacting]
     Active Substance: CLOZAPINE
     Dosage: 800 MILLIGRAM, QD (800 MG/DAILY)
     Dates: start: 20091012, end: 20091104
  7. CLOZAPINE [Interacting]
     Active Substance: CLOZAPINE
     Dosage: 600 MILLIGRAM, QD (600 MG/DAILY)
     Dates: start: 20091105, end: 20091108
  8. CLOZAPINE [Interacting]
     Active Substance: CLOZAPINE
     Dosage: 700 MILLIGRAM, QD (700 MG/DAILY)
     Dates: start: 20091109, end: 20091113
  9. CLOZAPINE [Interacting]
     Active Substance: CLOZAPINE
     Dosage: 800 MILLIGRAM, QD (800 MG/DAILY)
     Dates: start: 20091114
  10. RISPERDAL [Interacting]
     Active Substance: RISPERIDONE
     Indication: Ill-defined disorder
     Dosage: 2 MILLIGRAM, QD (2 MG/DAILY)
     Dates: start: 20091028, end: 20091028
  11. RISPERDAL [Interacting]
     Active Substance: RISPERIDONE
     Dosage: 3 MILLIGRAM, QD (3 MG/DAY)
     Dates: start: 20091029, end: 20091029
  12. RISPERDAL [Interacting]
     Active Substance: RISPERIDONE
     Dosage: 4 MILLIGRAM, QD (4 MG/DAILY)
     Dates: start: 20091030, end: 20091101
  13. RISPERDAL [Interacting]
     Active Substance: RISPERIDONE
     Dosage: 5 MILLIGRAM, QD (5 MG/DAILY)
     Dates: start: 20091102, end: 20091103
  14. RISPERDAL [Interacting]
     Active Substance: RISPERIDONE
     Dosage: 6 MILLIGRAM, QD (6 MG/DAILY)
     Dates: start: 20091104, end: 20091104
  15. MELPERONE HYDROCHLORIDE [Interacting]
     Active Substance: MELPERONE HYDROCHLORIDE
     Indication: Ill-defined disorder
     Dosage: 25 MILLIGRAM, QD (25 MG /DAILY)
     Dates: start: 20090829, end: 20090903
  16. MELPERONE HYDROCHLORIDE [Interacting]
     Active Substance: MELPERONE HYDROCHLORIDE
     Dosage: 50 MILLIGRAM, QD (50 MG /DAILY)
     Dates: start: 20090904, end: 20091006
  17. MELPERONE HYDROCHLORIDE [Interacting]
     Active Substance: MELPERONE HYDROCHLORIDE
     Dosage: 200 MILLIGRAM, QD (200MG/DAILY)
     Dates: start: 20091007, end: 20091104
  18. MELPERONE HYDROCHLORIDE [Interacting]
     Active Substance: MELPERONE HYDROCHLORIDE
     Dosage: 125 MILLIGRAM, QD (125 MG /DAILY)
     Dates: start: 20091110, end: 20091124
  19. MELPERONE HYDROCHLORIDE [Interacting]
     Active Substance: MELPERONE HYDROCHLORIDE
     Dosage: 175 MILLIGRAM, QD (175 MG /DAILY)
     Dates: start: 20091125, end: 20091125
  20. MELPERONE HYDROCHLORIDE [Interacting]
     Active Substance: MELPERONE HYDROCHLORIDE
     Dosage: 200 MILLIGRAM, QD (200 MG /DAILY)
     Dates: start: 20091126
  21. Tavor [Concomitant]
     Indication: Product used for unknown indication
     Dosage: 1 MILLIGRAM, QD (1 MG/DAY)
     Dates: start: 20090828, end: 20101101
  22. Tavor [Concomitant]
     Dosage: 1 MILLIGRAM, QD (1 MG/DAY)
     Dates: start: 20091102, end: 20091103
  23. Tavor [Concomitant]
     Dosage: 0.5 MILLIGRAM, QD (0.5  MG/DAY)
     Dates: start: 20091104, end: 20091104
  24. Tavor [Concomitant]
     Dosage: 3 MILLIGRAM, QD (3 MG/ DAY)
     Dates: start: 20091105, end: 20091107
  25. Tavor [Concomitant]
     Dosage: 4 MILLIGRAM, QD (4 MG/DAY)
     Dates: start: 20091108, end: 20091108
  26. Tavor [Concomitant]
     Dosage: QD (4-0  MG/DAY)
     Dates: start: 20091109, end: 20091127

REACTIONS (10)
  - Hyponatraemia [Recovered/Resolved]
  - Delusion [Unknown]
  - Hallucination [Unknown]
  - Polydipsia [Recovered/Resolved]
  - Paranoia [Recovered/Resolved]
  - Delirium [Recovered/Resolved]
  - Blood creatine phosphokinase increased [Unknown]
  - Drug interaction [Recovered/Resolved]
  - Overdose [Unknown]
  - Drug ineffective [Unknown]

NARRATIVE: CASE EVENT DATE: 20090828
